FAERS Safety Report 11328486 (Version 1)
Quarter: 2015Q3

REPORT INFORMATION
  Report Type: Report from Study
  Country: CA (occurrence: CA)
  Receive Date: 20150731
  Receipt Date: 20150731
  Transmission Date: 20151125
  Serious: Yes (Death, Hospitalization)
  Sender: FDA-Public Use
  Company Number: CA-ABBVIE-15K-028-1401051-00

PATIENT
  Sex: Female
  Weight: 88.7 kg

DRUGS (3)
  1. HUMIRA [Suspect]
     Active Substance: ADALIMUMAB
     Indication: RHEUMATOID ARTHRITIS
     Route: 058
     Dates: start: 20080520, end: 20150405
  2. PREDNISONE. [Concomitant]
     Active Substance: PREDNISONE
     Indication: PRODUCT USED FOR UNKNOWN INDICATION
     Dosage: HOSPITALISATION
     Route: 048
     Dates: start: 20020914
  3. SOLU-MEDROL [Concomitant]
     Active Substance: METHYLPREDNISOLONE SODIUM SUCCINATE
     Indication: PRODUCT USED FOR UNKNOWN INDICATION
     Dosage: DURING HOSPITALIZATION
     Route: 042

REACTIONS (5)
  - Pneumonia [Fatal]
  - Neuromyopathy [Fatal]
  - Multi-organ failure [Fatal]
  - Weaning failure [Fatal]
  - Bacterial test positive [Unknown]
